FAERS Safety Report 9784706 (Version 1)
Quarter: 2013Q4

REPORT INFORMATION
  Report Type: Report from Study
  Country: US (occurrence: US)
  Receive Date: 20131226
  Receipt Date: 20131226
  Transmission Date: 20140711
  Serious: Yes (Other)
  Sender: FDA-Public Use
  Company Number: US-ROCHE-1321012

PATIENT
  Age: 60 Year
  Sex: Female

DRUGS (2)
  1. NUTROPIN AQ [Suspect]
     Indication: GROWTH HORMONE DEFICIENCY
     Route: 058
  2. COSYNTROPIN [Concomitant]
     Route: 042
     Dates: start: 20130125, end: 20130125

REACTIONS (23)
  - Local swelling [Not Recovered/Not Resolved]
  - Alopecia [Not Recovered/Not Resolved]
  - Headache [Recovered/Resolved]
  - Acrochordon [Not Recovered/Not Resolved]
  - Weight increased [Not Recovered/Not Resolved]
  - Hair growth abnormal [Not Recovered/Not Resolved]
  - Rhinorrhoea [Not Recovered/Not Resolved]
  - Impaired healing [Not Recovered/Not Resolved]
  - Hot flush [Not Recovered/Not Resolved]
  - Dyspnoea [Not Recovered/Not Resolved]
  - Wheezing [Not Recovered/Not Resolved]
  - Asthenia [Not Recovered/Not Resolved]
  - Hypoaesthesia [Not Recovered/Not Resolved]
  - Memory impairment [Not Recovered/Not Resolved]
  - Sleep disorder [Not Recovered/Not Resolved]
  - Anxiety [Not Recovered/Not Resolved]
  - Vision blurred [Not Recovered/Not Resolved]
  - Dry skin [Not Recovered/Not Resolved]
  - Increased tendency to bruise [Not Recovered/Not Resolved]
  - Body temperature fluctuation [Not Recovered/Not Resolved]
  - Libido decreased [Not Recovered/Not Resolved]
  - Palpitations [Not Recovered/Not Resolved]
  - Depression [Recovered/Resolved]
